FAERS Safety Report 5694242-5 (Version None)
Quarter: 2008Q2

REPORT INFORMATION
  Report Type: 
  Country: None (occurrence: None)
  Receive Date: 20080402
  Receipt Date: 20080325
  Transmission Date: 20081010
  Serious: Yes (Life-Threatening)
  Sender: FDA-Public Use
  Company Number: E2020-02171-SPO-JP

PATIENT
  Age: 82 Year
  Sex: Female
  Weight: 38.5 kg

DRUGS (7)
  1. ARICEPT [Suspect]
     Indication: DEMENTIA ALZHEIMER'S TYPE
     Dosage: 5 MG, 1 IN 1 D, ORAL
     Route: 048
     Dates: start: 20060525, end: 20071218
  2. MICARDIS [Concomitant]
  3. ROHYPNOL (FLUNITRAZEPAM) [Concomitant]
  4. CARVEDILOL [Concomitant]
  5. ASPARA K (ASPARTATE POTASSIUM) [Concomitant]
  6. HALCION [Concomitant]
  7. LASIX [Concomitant]

REACTIONS (9)
  - BLOOD ALDOSTERONE DECREASED [None]
  - BLOOD POTASSIUM INCREASED [None]
  - ELECTROCARDIOGRAM QT PROLONGED [None]
  - HYPOKALAEMIA [None]
  - HYPOXIA [None]
  - PLEURAL EFFUSION [None]
  - RENIN DECREASED [None]
  - SYNCOPE [None]
  - TORSADE DE POINTES [None]
